FAERS Safety Report 4994468-X (Version None)
Quarter: 2006Q2

REPORT INFORMATION
  Report Type: 
  Country: None (occurrence: None)
  Receive Date: 20060505
  Receipt Date: 20060421
  Transmission Date: 20061013
  Serious: Yes (Disabling)
  Sender: FDA-Public Use
  Company Number: US-MERCK-0604USA03415

PATIENT
  Age: 54 Year
  Sex: Female
  Weight: 64 kg

DRUGS (3)
  1. FOSAMAX [Suspect]
     Indication: OSTEOPENIA
     Route: 048
     Dates: end: 20060417
  2. [THERAPY UNSPECIFIED] [Concomitant]
     Route: 065
  3. FOSAMAX [Suspect]
     Route: 048

REACTIONS (6)
  - ERYTHEMA [None]
  - PURULENCE [None]
  - RASH [None]
  - STOMACH DISCOMFORT [None]
  - SWELLING FACE [None]
  - URTICARIA [None]
